FAERS Safety Report 7878503-7 (Version None)
Quarter: 2011Q4

REPORT INFORMATION
  Report Type: 
  Country: None (occurrence: None)
  Receive Date: 20111028
  Receipt Date: 20111018
  Transmission Date: 20120403
  Serious: Yes (Disabling)
  Sender: FDA-Public Use
  Company Number: CIP11002743

PATIENT
  Sex: Female

DRUGS (1)
  1. ACTONEL [Suspect]
     Indication: OSTEOPOROSIS POSTMENOPAUSAL
     Dosage: 150 MG, ORAL
     Route: 048
     Dates: start: 20110809, end: 20110809

REACTIONS (5)
  - ABASIA [None]
  - NAUSEA [None]
  - MYALGIA [None]
  - PAIN IN EXTREMITY [None]
  - TENDERNESS [None]
